FAERS Safety Report 7713821-4 (Version None)
Quarter: 2011Q3

REPORT INFORMATION
  Report Type: 
  Country: None (occurrence: None)
  Receive Date: 20110826
  Receipt Date: 20110822
  Transmission Date: 20111222
  Serious: Yes (Other)
  Sender: FDA-Public Use
  Company Number: US-PFIZER INC-2011175598

PATIENT
  Sex: Male

DRUGS (1)
  1. DETROL LA [Suspect]
     Dosage: 4 MG, UNK
     Dates: start: 20110724

REACTIONS (4)
  - MEMORY IMPAIRMENT [None]
  - NOCTURIA [None]
  - CONFUSIONAL STATE [None]
  - DRUG INEFFECTIVE [None]
